FAERS Safety Report 16422762 (Version 1)
Quarter: 2019Q2

REPORT INFORMATION
  Report Type: Spontaneous
  Country: US (occurrence: US)
  Receive Date: 20190612
  Receipt Date: 20190612
  Transmission Date: 20190711
  Serious: No
  Sender: FDA-Public Use
  Company Number: US-SA-2019SA156452

PATIENT
  Age: 81 Year
  Sex: Male

DRUGS (1)
  1. FLOMAX [Suspect]
     Active Substance: TAMSULOSIN HYDROCHLORIDE
     Indication: PROSTATOMEGALY
     Dosage: 0.4 MG, QD

REACTIONS (2)
  - Pharyngo-oesophageal diverticulum [Not Recovered/Not Resolved]
  - Visual impairment [Not Recovered/Not Resolved]
